FAERS Safety Report 25879282 (Version 1)
Quarter: 2025Q4

REPORT INFORMATION
  Report Type: Spontaneous
  Country: US (occurrence: US)
  Receive Date: 20251003
  Receipt Date: 20251003
  Transmission Date: 20260118
  Serious: No
  Sender: GRIFOLS
  Company Number: US-IGSA-BIG0038261

PATIENT
  Age: 57 Year
  Sex: Female

DRUGS (4)
  1. GAMUNEX-C [Suspect]
     Active Substance: HUMAN IMMUNOGLOBULIN G
     Indication: Product used for unknown indication
     Dosage: 30 GRAM
     Route: 042
     Dates: start: 20250918, end: 20250918
  2. GAMUNEX-C [Suspect]
     Active Substance: HUMAN IMMUNOGLOBULIN G
     Dosage: UNK
  3. ACETAMINOPHEN [Concomitant]
     Active Substance: ACETAMINOPHEN
     Indication: Premedication
     Dosage: UNK UNK, SINGLE
     Route: 065
     Dates: start: 20250918, end: 20250918
  4. BENADRYL [Concomitant]
     Active Substance: DIPHENHYDRAMINE HYDROCHLORIDE
     Indication: Premedication
     Dosage: UNK UNK, SINGLE
     Route: 065
     Dates: start: 20250918, end: 20250918

REACTIONS (3)
  - Incorrect drug administration rate [Unknown]
  - Lip swelling [Unknown]
  - Malaise [Unknown]

NARRATIVE: CASE EVENT DATE: 20250918
